FAERS Safety Report 8884824 (Version 1)
Quarter: 2012Q4

REPORT INFORMATION
  Report Type: Report from Study
  Country: GB (occurrence: GB)
  Receive Date: 20121105
  Receipt Date: 20121105
  Transmission Date: 20130627
  Serious: Yes (Hospitalization)
  Sender: FDA-Public Use
  Company Number: GB-AMGEN-GBRCT2012052349

PATIENT
  Age: 11 Year
  Sex: Female
  Weight: 45.4 kg

DRUGS (9)
  1. ETANERCEPT [Suspect]
     Indication: JUVENILE ARTHRITIS
     Dosage: 10 mg, 2x/week
     Route: 058
     Dates: start: 20070129
  2. PREDNISOLONE [Concomitant]
     Dosage: 10 mg, 1x/day
     Route: 048
     Dates: start: 20101001
  3. ACICLOVIR [Concomitant]
     Dosage: 5 days IV
     Route: 042
     Dates: start: 20101001
  4. ACICLOVIR [Concomitant]
     Dosage: 3 days oral, 800mg/day
     Route: 048
  5. TOCILIZUMAB [Concomitant]
     Dosage: UNK UNK, q2wk
     Route: 042
     Dates: start: 20090901
  6. INFLIXIMAB [Concomitant]
     Dosage: 150 mg, week 0,2,6 then every 8 weeks
     Route: 042
     Dates: start: 20071201
  7. CICLOSPORIN [Concomitant]
     Dosage: 50 mg, 2x/day
     Route: 048
     Dates: start: 20071201
  8. FOLIC ACID [Concomitant]
     Dosage: 5 mg, weekly
     Route: 048
     Dates: start: 20070701
  9. IBUPROFEN [Concomitant]
     Dosage: 250 mg, as needed
     Route: 048
     Dates: start: 20060801

REACTIONS (1)
  - Herpes zoster [Recovered/Resolved]
